FAERS Safety Report 10060114 (Version 3)
Quarter: 2014Q4

REPORT INFORMATION
  Report Type: Report from Study
  Country: JP (occurrence: JP)
  Receive Date: 20140404
  Receipt Date: 20141218
  Transmission Date: 20150528
  Serious: Yes (Other)
  Sender: FDA-Public Use
  Company Number: JP-ALLERGAN-1406629US

PATIENT
  Age: 79 Year
  Sex: Male

DRUGS (5)
  1. MIKELAN LA [Concomitant]
     Active Substance: CARTEOLOL HYDROCHLORIDE
     Dosage: UNK
     Route: 047
     Dates: start: 20070323
  2. DETANTOL [Concomitant]
     Dosage: UNK
     Route: 047
     Dates: start: 20070323
  3. TRUSOPT [Concomitant]
     Active Substance: DORZOLAMIDE HYDROCHLORIDE
     Dosage: UNK
     Route: 047
     Dates: start: 20070323
  4. BIMATOPROST 0.03% SOL-EYE (9106X) [Suspect]
     Active Substance: BIMATOPROST
     Indication: OPEN ANGLE GLAUCOMA
     Dosage: 1 DROP BOTH EYES ONCE DAILY
     Route: 047
     Dates: start: 20100115
  5. SANPILO [Concomitant]
     Dosage: UNK
     Route: 047
     Dates: start: 20070309

REACTIONS (1)
  - Foot fracture [Not Recovered/Not Resolved]

NARRATIVE: CASE EVENT DATE: 20101013
